FAERS Safety Report 9679243 (Version 2)
Quarter: 2013Q4

REPORT INFORMATION
  Report Type: Report from Study
  Country: US (occurrence: US)
  Receive Date: 20131108
  Receipt Date: 20131127
  Transmission Date: 20140711
  Serious: Yes (Death)
  Sender: FDA-Public Use
  Company Number: US-ROCHE-1298233

PATIENT
  Age: 63 Year
  Sex: Female

DRUGS (10)
  1. XELODA [Suspect]
     Indication: BREAST CANCER METASTATIC
     Dosage: 14 DAYS AND OFF 7 DAYS 1500MG BID
     Route: 048
     Dates: start: 20130923, end: 2013
  2. TAXOTERE [Suspect]
     Indication: PRODUCT USED FOR UNKNOWN INDICATION
     Route: 065
  3. ACIPHEX [Concomitant]
  4. AVELOX [Concomitant]
  5. NORCO [Concomitant]
  6. NORVASC [Concomitant]
  7. ONDANSETRON [Concomitant]
  8. PROCHLORPERAZINE [Concomitant]
  9. TOPROL [Concomitant]
  10. TRAMADOL [Concomitant]

REACTIONS (3)
  - Gastrointestinal haemorrhage [Fatal]
  - Metastases to liver [Fatal]
  - Septic shock [Fatal]
